FAERS Safety Report 9225599 (Version 1)
Quarter: 2013Q2

REPORT INFORMATION
  Report Type: Spontaneous
  Country: US (occurrence: US)
  Receive Date: 20130411
  Receipt Date: 20130411
  Transmission Date: 20140414
  Serious: Yes (Death, Life-Threatening)
  Sender: FDA-Public Use
  Company Number: US-ROCHE-1210024

PATIENT
  Age: 55 Year
  Sex: Male

DRUGS (3)
  1. ACTILYSE [Suspect]
     Indication: PULMONARY EMBOLISM
     Dosage: FOLLOWED BY A 45 MG/H INFUSION
     Route: 042
  2. ADRENALINE [Concomitant]
  3. HEPARIN [Concomitant]

REACTIONS (4)
  - Death [Fatal]
  - Drug ineffective [Unknown]
  - Pulseless electrical activity [Recovered/Resolved]
  - Condition aggravated [Unknown]
